FAERS Safety Report 23822590 (Version 1)
Quarter: 2024Q2

REPORT INFORMATION
  Report Type: Spontaneous
  Country: CA (occurrence: CA)
  Receive Date: 20240506
  Receipt Date: 20240506
  Transmission Date: 20240715
  Serious: Yes (Other)
  Sender: FDA-Public Use
  Company Number: CA-TEVA-VS-3194149

PATIENT

DRUGS (1)
  1. CIPROFLOXACIN HYDROCHLORIDE [Suspect]
     Active Substance: CIPROFLOXACIN HYDROCHLORIDE
     Dosage: DOSE FORM: NOT SPECIFIED
     Route: 048

REACTIONS (7)
  - Stevens-Johnson syndrome [Unknown]
  - Dysuria [Unknown]
  - Genital ulceration [Unknown]
  - Odynophagia [Unknown]
  - Pyrexia [Unknown]
  - Rash [Unknown]
  - Dysphagia [Unknown]
